FAERS Safety Report 4658050-6 (Version None)
Quarter: 2005Q2

REPORT INFORMATION
  Report Type: 
  Country: None (occurrence: None)
  Receive Date: 20050505
  Receipt Date: 20050309
  Transmission Date: 20051028
  Serious: No
  Sender: FDA-Public Use
  Company Number: 2005USFACT00392

PATIENT
  Age: 77 Year
  Sex: Female
  Weight: 65.3 kg

DRUGS (6)
  1. FACTIVE [Suspect]
     Indication: RESPIRATORY TRACT INFECTION BACTERIAL
     Dosage: 320.00 MG QD; ORAL
     Route: 048
     Dates: start: 20050308, end: 20050309
  2. ATACAND [Concomitant]
  3. HYDRON KGS [Concomitant]
  4. CARAFATE [Concomitant]
  5. NEXIUM [Concomitant]
  6. PREMARIN [Concomitant]

REACTIONS (1)
  - PAIN [None]
